FAERS Safety Report 9357784 (Version 2)
Quarter: 2013Q4

REPORT INFORMATION
  Report Type: Report from Study
  Country: CN (occurrence: CN)
  Receive Date: 20130620
  Receipt Date: 20131028
  Transmission Date: 20140711
  Serious: Yes (Hospitalization, Other)
  Sender: FDA-Public Use
  Company Number: CN-ROCHE-1239386

PATIENT
  Age: 61 Year
  Sex: Female
  Weight: 55 kg

DRUGS (3)
  1. PEGASYS [Suspect]
     Indication: HEPATITIS C
     Route: 058
     Dates: start: 201110, end: 201209
  2. PEGASYS [Suspect]
     Route: 058
     Dates: start: 201210
  3. PEGASYS [Suspect]
     Route: 058
     Dates: start: 201202, end: 201309

REACTIONS (9)
  - Full blood count abnormal [Unknown]
  - Hepatitis C [Unknown]
  - White blood cell count decreased [Recovering/Resolving]
  - Neutrophil count decreased [Recovering/Resolving]
  - Pyrexia [Recovering/Resolving]
  - Asthenia [Unknown]
  - Decreased appetite [Unknown]
  - Cachexia [Unknown]
  - Platelet count decreased [Unknown]
